FAERS Safety Report 5535648-4 (Version None)
Quarter: 2007Q4

REPORT INFORMATION
  Report Type: 
  Country: None (occurrence: None)
  Receive Date: 20071204
  Receipt Date: 20071204
  Transmission Date: 20080405
  Serious: Yes (Hospitalization)
  Sender: FDA-Public Use
  Company Number: None

PATIENT
  Sex: Male
  Weight: 79.8 kg

DRUGS (4)
  1. DOXORUBICIN HYDROCHLORIDE [Suspect]
     Dosage: 134.8 MG
  2. ETOPOSIDE [Suspect]
     Dosage: 674 MG
  3. PREDNISONE [Suspect]
     Dosage: 1200 MG
  4. VINCRISTINE SULFATE [Suspect]
     Dosage: 3.12 MG  LEVEL 4

REACTIONS (3)
  - ANORECTAL DISORDER [None]
  - HERPES VIRUS INFECTION [None]
  - ORAL HERPES [None]
